FAERS Safety Report 22611241 (Version 2)
Quarter: 2023Q2

REPORT INFORMATION
  Report Type: Spontaneous
  Country: CZ (occurrence: CZ)
  Receive Date: 20230616
  Receipt Date: 20230628
  Transmission Date: 20230721
  Serious: Yes (Other)
  Sender: FDA-Public Use
  Company Number: CZ-SA-2023SA181837

PATIENT

DRUGS (1)
  1. ALDURAZYME [Suspect]
     Active Substance: LARONIDASE
     Indication: Mucopolysaccharidosis I
     Dosage: 100 IU/KG, QW
     Route: 042

REACTIONS (5)
  - Graft versus host disease [Unknown]
  - Leukopenia [Unknown]
  - Febrile neutropenia [Unknown]
  - Cytomegalovirus infection reactivation [Unknown]
  - Thrombocytosis [Unknown]
